FAERS Safety Report 19443574 (Version 1)
Quarter: 2021Q2

REPORT INFORMATION
  Report Type: Spontaneous
  Country: GB (occurrence: GB)
  Receive Date: 20210621
  Receipt Date: 20210621
  Transmission Date: 20210717
  Serious: Yes (Other)
  Sender: FDA-Public Use
  Company Number: GB-PFIZER INC-2021664062

PATIENT
  Age: 35 Year
  Sex: Female
  Weight: 58 kg

DRUGS (6)
  1. SALBUTAMOL SULPHATE [Concomitant]
     Active Substance: ALBUTEROL SULFATE
     Indication: ILL-DEFINED DISORDER
     Dosage: UNK
  2. DOXYCYCLINE HYCLATE. [Suspect]
     Active Substance: DOXYCYCLINE HYCLATE
     Indication: CHLAMYDIAL INFECTION
     Dosage: 100 MG
     Route: 048
     Dates: start: 20210603
  3. METRONIDAZOL [METRONIDAZOLE] [Suspect]
     Active Substance: METRONIDAZOLE
     Indication: ABDOMINAL PAIN
     Dosage: 400 MG
     Route: 048
     Dates: start: 20210603
  4. METRONIDAZOL [METRONIDAZOLE] [Suspect]
     Active Substance: METRONIDAZOLE
     Indication: CHLAMYDIAL INFECTION
  5. CLENIL MODULITE [Concomitant]
     Active Substance: BECLOMETHASONE DIPROPIONATE
     Indication: ILL-DEFINED DISORDER
     Dosage: UNK
  6. COCODAMOL [Concomitant]
     Active Substance: ACETAMINOPHEN\CODEINE PHOSPHATE
     Indication: ILL-DEFINED DISORDER
     Dosage: UNK

REACTIONS (8)
  - Paraesthesia [Not Recovered/Not Resolved]
  - Erythema [Unknown]
  - Malaise [Not Recovered/Not Resolved]
  - Sunburn [Unknown]
  - Vision blurred [Not Recovered/Not Resolved]
  - Feeling abnormal [Not Recovered/Not Resolved]
  - Hyperaesthesia [Unknown]
  - Photophobia [Not Recovered/Not Resolved]

NARRATIVE: CASE EVENT DATE: 20210604
